FAERS Safety Report 6473737-0 (Version None)
Quarter: 2009Q4

REPORT INFORMATION
  Report Type: 
  Country: None (occurrence: None)
  Receive Date: 20091204
  Receipt Date: 20091125
  Transmission Date: 20100525
  Serious: Yes (Other)
  Sender: FDA-Public Use
  Company Number: HR-JNJFOC-20091108021

PATIENT
  Sex: Female
  Weight: 70 kg

DRUGS (2)
  1. RISPOLEPT CONSTA [Suspect]
     Route: 030
  2. RISPOLEPT CONSTA [Suspect]
     Indication: DEPRESSION
     Route: 030

REACTIONS (2)
  - AGGRESSION [None]
  - OFF LABEL USE [None]
